FAERS Safety Report 4648553-2 (Version None)
Quarter: 2005Q2

REPORT INFORMATION
  Report Type: 
  Country: None (occurrence: None)
  Receive Date: 20050429
  Receipt Date: 20050419
  Transmission Date: 20051028
  Serious: Yes (Death)
  Sender: FDA-Public Use
  Company Number: US-JNJFOC-20050404810

PATIENT
  Age: 75 Year
  Sex: Female

DRUGS (2)
  1. LEVAQUIN [Suspect]
     Route: 042
  2. LEVAQUIN [Suspect]
     Route: 042

REACTIONS (1)
  - OBSTRUCTIVE AIRWAYS DISORDER [None]
